FAERS Safety Report 11744648 (Version 2)
Quarter: 2016Q1

REPORT INFORMATION
  Report Type: Spontaneous
  Country: CZ (occurrence: CZ)
  Receive Date: 20151116
  Receipt Date: 20160217
  Transmission Date: 20160525
  Serious: Yes (Life-Threatening)
  Sender: FDA-Public Use
  Company Number: CZ-IGSA-CZ-CZSUKL-15002811

PATIENT
  Age: 29 Year
  Sex: Male

DRUGS (5)
  1. FLEXBUMIN [Concomitant]
     Active Substance: ALBUMIN (HUMAN)
     Indication: MALNUTRITION
  2. FLEXBUMIN [Concomitant]
     Active Substance: ALBUMIN (HUMAN)
     Indication: HYPOALBUMINAEMIA
  3. FLEBOGAMMA DIF [Suspect]
     Active Substance: HUMAN IMMUNOGLOBULIN G
     Indication: SEPSIS
     Dosage: 12.00-18.00 0,6ML/KG/H FOR THE 1ST HOUR, THEN 2ML/H
     Route: 042
     Dates: start: 20151015, end: 20151015
  4. SIMPONI [Concomitant]
     Active Substance: GOLIMUMAB
     Indication: RHEUMATOID ARTHRITIS
  5. METHOTREXATUM [Concomitant]
     Indication: RHEUMATOID ARTHRITIS

REACTIONS (1)
  - Acute respiratory failure [Recovered/Resolved]

NARRATIVE: CASE EVENT DATE: 20151015
